FAERS Safety Report 8362099-X (Version None)
Quarter: 2012Q2

REPORT INFORMATION
  Report Type: 
  Country: None (occurrence: None)
  Receive Date: 20120515
  Receipt Date: 20120509
  Transmission Date: 20120825
  Serious: Yes (Other)
  Sender: FDA-Public Use
  Company Number: CHPA2012DE006529

PATIENT
  Sex: Female

DRUGS (1)
  1. NICOTINELL TTS 20 [Suspect]
     Indication: SMOKING CESSATION THERAPY
     Dosage: 14 MG, QD
     Route: 062
     Dates: start: 20120314, end: 20120405

REACTIONS (3)
  - APPLICATION SITE ERYTHEMA [None]
  - BURNING SENSATION [None]
  - APPLICATION SITE PRURITUS [None]
